FAERS Safety Report 12159082 (Version 2)
Quarter: 2016Q2

REPORT INFORMATION
  Report Type: Spontaneous
  Country: GB (occurrence: GB)
  Receive Date: 20160308
  Receipt Date: 20160401
  Transmission Date: 20160815
  Serious: Yes (Death, Other)
  Sender: FDA-Public Use
  Company Number: GB-WATSON-2016-04747

PATIENT
  Age: 35 Year
  Sex: Male
  Weight: 127 kg

DRUGS (1)
  1. CITALOPRAM [Suspect]
     Active Substance: CITALOPRAM HYDROBROMIDE
     Indication: ANXIETY
     Dosage: 60 MG, DAILY
     Route: 065
     Dates: start: 20151001

REACTIONS (3)
  - Sleep apnoea syndrome [Fatal]
  - Arrhythmia [Not Recovered/Not Resolved]
  - Toxicity to various agents [Not Recovered/Not Resolved]
